FAERS Safety Report 15910536 (Version 1)
Quarter: 2019Q1

REPORT INFORMATION
  Report Type: Spontaneous
  Country: US (occurrence: US)
  Receive Date: 20190204
  Receipt Date: 20190204
  Transmission Date: 20190417
  Serious: No
  Sender: FDA-Public Use
  Company Number: US-ABBVIE-18K-163-2390163-00

PATIENT
  Sex: Female

DRUGS (2)
  1. OTEZLA [Suspect]
     Active Substance: APREMILAST
     Indication: PRODUCT USED FOR UNKNOWN INDICATION
     Route: 050
  2. HUMIRA [Suspect]
     Active Substance: ADALIMUMAB
     Indication: PSORIASIS
     Route: 058
     Dates: start: 20180322

REACTIONS (6)
  - Nausea [Unknown]
  - Drug ineffective [Unknown]
  - Injection site irritation [Unknown]
  - Vomiting projectile [Unknown]
  - Wrong technique in product usage process [Unknown]
  - Injection site pain [Recovered/Resolved with Sequelae]

NARRATIVE: CASE EVENT DATE: 2018
